FAERS Safety Report 4840853-6 (Version None)
Quarter: 2005Q4

REPORT INFORMATION
  Report Type: 
  Country: None (occurrence: None)
  Receive Date: 20051130
  Receipt Date: 20050916
  Transmission Date: 20060501
  Serious: No
  Sender: FDA-Public Use
  Company Number: US-BRISTOL-MYERS SQUIBB COMPANY-13113501

PATIENT
  Sex: Female

DRUGS (2)
  1. AVALIDE [Suspect]
     Indication: HYPERTENSION
     Dosage: DOSAGE FORM: 150 MG / 12.5 MG REDUCED TO ONE-HALF TABLET DAILY
     Dates: start: 20040101
  2. FOSAMAX [Concomitant]

REACTIONS (2)
  - DIZZINESS [None]
  - RASH ERYTHEMATOUS [None]
